FAERS Safety Report 13468984 (Version 2)
Quarter: 2017Q2

REPORT INFORMATION
  Report Type: Spontaneous
  Country: JP (occurrence: JP)
  Receive Date: 20170421
  Receipt Date: 20170623
  Transmission Date: 20170830
  Serious: Yes (Other)
  Sender: FDA-Public Use
  Company Number: JP-GILEAD-2017-0259590

PATIENT
  Age: 74 Year
  Sex: Male

DRUGS (8)
  1. PROMAC                             /00024401/ [Concomitant]
     Active Substance: NITROFURANTOIN
     Dosage: UNK
  2. URSO [Concomitant]
     Active Substance: URSODIOL
     Dosage: UNK
  3. BAYASPIRIN [Concomitant]
     Active Substance: ASPIRIN
     Dosage: UNK
  4. OLMETEC [Concomitant]
     Active Substance: OLMESARTAN MEDOXOMIL
     Dosage: UNK
  5. DIAZEPAM. [Concomitant]
     Active Substance: DIAZEPAM
     Dosage: UNK
  6. TENOFOVIR DISOPROXIL FUMARATE. [Suspect]
     Active Substance: TENOFOVIR DISOPROXIL FUMARATE
     Indication: CHRONIC HEPATITIS B
     Dosage: 300 MG, QD
     Route: 048
     Dates: start: 20161201, end: 20170111
  7. TAKEPRON [Concomitant]
     Active Substance: LANSOPRAZOLE
     Dosage: UNK
  8. DIAZEPAM. [Concomitant]
     Active Substance: DIAZEPAM
     Dosage: UNK

REACTIONS (8)
  - Rash [Recovered/Resolved]
  - Rash pustular [Recovering/Resolving]
  - Abdominal pain lower [Recovering/Resolving]
  - Pyrexia [Unknown]
  - Arthralgia [Recovered/Resolved]
  - Erythema [Recovering/Resolving]
  - Pain [Recovered/Resolved]
  - Herpes zoster [Recovered/Resolved]

NARRATIVE: CASE EVENT DATE: 20170112
